FAERS Safety Report 6325364-3 (Version None)
Quarter: 2009Q3

REPORT INFORMATION
  Report Type: 
  Country: None (occurrence: None)
  Receive Date: 20090824
  Receipt Date: 20090717
  Transmission Date: 20100115
  Serious: No
  Sender: FDA-Public Use
  Company Number: US-ABBOTT-09P-163-0586336-00

PATIENT
  Sex: Male
  Weight: 90.8 kg

DRUGS (16)
  1. NIASPAN [Suspect]
     Indication: BLOOD CHOLESTEROL INCREASED
     Route: 048
     Dates: start: 20090714
  2. NIASPAN [Suspect]
     Indication: HIGH DENSITY LIPOPROTEIN DECREASED
  3. SYNTHROID [Concomitant]
     Indication: DRUG USE FOR UNKNOWN INDICATION
  4. CYMBALTA [Concomitant]
     Indication: DRUG USE FOR UNKNOWN INDICATION
  5. STOOL SOFTENER [Concomitant]
     Indication: DRUG USE FOR UNKNOWN INDICATION
  6. CARAFATE [Concomitant]
     Indication: DRUG USE FOR UNKNOWN INDICATION
  7. CADUET [Concomitant]
     Indication: DRUG USE FOR UNKNOWN INDICATION
  8. ASPIRIN [Concomitant]
     Indication: DRUG USE FOR UNKNOWN INDICATION
  9. HYDROCODONE [Concomitant]
     Indication: ARTHRITIS
  10. FE GLUCONATE [Concomitant]
     Indication: DRUG USE FOR UNKNOWN INDICATION
  11. XANAX [Concomitant]
     Indication: DRUG USE FOR UNKNOWN INDICATION
  12. FLOMAX [Concomitant]
     Indication: DRUG USE FOR UNKNOWN INDICATION
  13. ZOLEIDEM [Concomitant]
     Indication: DRUG USE FOR UNKNOWN INDICATION
  14. XALATAN [Concomitant]
     Indication: DRUG USE FOR UNKNOWN INDICATION
     Dosage: FORM: EYE GTT
  15. BYETTA [Concomitant]
     Indication: DRUG USE FOR UNKNOWN INDICATION
  16. LANTUS [Concomitant]
     Indication: DRUG USE FOR UNKNOWN INDICATION

REACTIONS (2)
  - DYSPEPSIA [None]
  - FLUSHING [None]
